FAERS Safety Report 23559826 (Version 2)
Quarter: 2024Q1

REPORT INFORMATION
  Report Type: Spontaneous
  Country: JP (occurrence: JP)
  Receive Date: 20240223
  Receipt Date: 20240321
  Transmission Date: 20240410
  Serious: Yes (Hospitalization, Other)
  Sender: FDA-Public Use
  Company Number: JP-OTSUKA-2023_033987

PATIENT
  Age: 69 Year
  Sex: Male

DRUGS (1)
  1. SAMSCA [Suspect]
     Active Substance: TOLVAPTAN
     Indication: Cardiac failure
     Dosage: 15MG/DAY
     Route: 048
     Dates: start: 20220511

REACTIONS (5)
  - Acute kidney injury [Unknown]
  - Malaise [Unknown]
  - Diarrhoea [Unknown]
  - Decreased appetite [Unknown]
  - Hepatic function abnormal [Unknown]

NARRATIVE: CASE EVENT DATE: 20231222
